FAERS Safety Report 8904206 (Version 1)
Quarter: 2012Q4

REPORT INFORMATION
  Report Type: 
  Country: US (occurrence: US)
  Receive Date: 20121112
  Receipt Date: 20121112
  Transmission Date: 20130627
  Serious: No
  Sender: FDA-Public Use
  Company Number: US-ASTRAZENECA-2012SE82108

PATIENT
  Age: 62 Year
  Sex: Male

DRUGS (1)
  1. SEROQUEL XR [Suspect]
     Indication: MAJOR DEPRESSION
     Route: 048
     Dates: start: 2012, end: 2012

REACTIONS (1)
  - Glycosylated haemoglobin increased [Unknown]
